FAERS Safety Report 15596117 (Version 1)
Quarter: 2018Q4

REPORT INFORMATION
  Report Type: Spontaneous
  Country: US (occurrence: US)
  Receive Date: 20181107
  Receipt Date: 20181107
  Transmission Date: 20190205
  Serious: No
  Sender: FDA-Public Use
  Company Number: US-SA-2018SA302011

PATIENT
  Age: 85 Year
  Sex: Female

DRUGS (2)
  1. ENOXAPARIN SODIUM - WINTHROP [Suspect]
     Active Substance: ENOXAPARIN SODIUM
     Indication: PULMONARY EMBOLISM
     Dosage: 150 MG, QD
  2. ENOXAPARIN SODIUM - WINTHROP [Suspect]
     Active Substance: ENOXAPARIN SODIUM
     Dosage: 150 MG, QD

REACTIONS (3)
  - Needle issue [Unknown]
  - Product quality issue [Unknown]
  - Injury associated with device [Unknown]
